FAERS Safety Report 4780086-5 (Version None)
Quarter: 2005Q3

REPORT INFORMATION
  Report Type: 
  Country: None (occurrence: None)
  Receive Date: 20050914
  Receipt Date: 20050427
  Transmission Date: 20060218
  Serious: Yes (Hospitalization)
  Sender: FDA-Public Use
  Company Number: 163-20785-05040556

PATIENT
  Age: 65 Year
  Sex: Male
  Weight: 81 kg

DRUGS (21)
  1. THALOMID [Suspect]
     Indication: MULTIPLE MYELOMA
     Dosage: ORAL
     Route: 048
     Dates: start: 20041208
  2. THALOMID [Suspect]
     Indication: MULTIPLE MYELOMA
     Dosage: ORAL
     Route: 048
     Dates: start: 20050112
  3. MELPHALAN (MELPHALAN) [Suspect]
     Indication: MULTIPLE MYELOMA
     Dosage: 392 MG, INTRAVENOUS
     Route: 042
     Dates: start: 20050210, end: 20050210
  4. BORTEZOMIB (BORTEZOMIB) [Suspect]
     Indication: MULTIPLE MYELOMA
     Dates: start: 20041208
  5. BORTEZOMIB (BORTEZOMIB) [Suspect]
     Indication: MULTIPLE MYELOMA
     Dates: start: 20050112
  6. ADRIAMYCIN PFS [Suspect]
     Indication: MULTIPLE MYELOMA
     Dates: start: 20041208
  7. ADRIAMYCIN PFS [Suspect]
     Indication: MULTIPLE MYELOMA
     Dates: start: 20050112
  8. DEXAMETHASONE [Suspect]
     Indication: MULTIPLE MYELOMA
     Dates: start: 20041208
  9. DEXAMETHASONE [Suspect]
     Indication: MULTIPLE MYELOMA
     Dates: start: 20050112
  10. CISPLATIN [Suspect]
     Indication: MULTIPLE MYELOMA
     Dates: start: 20041208
  11. CISPLATIN [Suspect]
     Indication: MULTIPLE MYELOMA
     Dates: start: 20050112
  12. CYCLOPHOSPHAMIDE [Suspect]
     Indication: MULTIPLE MYELOMA
     Dates: start: 20041208
  13. CYCLOPHOSPHAMIDE [Suspect]
     Indication: MULTIPLE MYELOMA
     Dates: start: 20050112
  14. ETOPOSIDE [Suspect]
     Indication: MULTIPLE MYELOMA
     Dates: start: 20041208
  15. ETOPOSIDE [Suspect]
     Indication: MULTIPLE MYELOMA
     Dates: start: 20050112
  16. RANITIDINE [Concomitant]
  17. SYNTHROID [Concomitant]
  18. FLUCONAZOLE [Concomitant]
  19. MAGNESIUM OXIDE [Concomitant]
  20. ACYCLOVIR [Concomitant]
  21. LEVAQUIN [Concomitant]

REACTIONS (1)
  - PYREXIA [None]
